FAERS Safety Report 6133002-8 (Version None)
Quarter: 2009Q1

REPORT INFORMATION
  Report Type: 
  Country: None (occurrence: None)
  Receive Date: 20090326
  Receipt Date: 20090316
  Transmission Date: 20090719
  Serious: Yes (Hospitalization, Other)
  Sender: FDA-Public Use
  Company Number: US-AMGEN-QUU338794

PATIENT
  Sex: Female

DRUGS (2)
  1. ENBREL [Suspect]
     Indication: PSORIATIC ARTHROPATHY
     Route: 058
     Dates: start: 20050517
  2. ENBREL [Suspect]
     Indication: PSORIASIS

REACTIONS (10)
  - AXILLARY PAIN [None]
  - BACK PAIN [None]
  - GALLBLADDER OPERATION [None]
  - KIDNEY INFECTION [None]
  - MALAISE [None]
  - NAUSEA [None]
  - OEDEMA PERIPHERAL [None]
  - PAIN IN EXTREMITY [None]
  - PARAESTHESIA [None]
  - PSORIATIC ARTHROPATHY [None]
